FAERS Safety Report 7258583-2 (Version None)
Quarter: 2011Q1

REPORT INFORMATION
  Report Type: 
  Country: None (occurrence: None)
  Receive Date: 20110129
  Receipt Date: 20100502
  Transmission Date: 20110831
  Serious: No
  Sender: FDA-Public Use
  Company Number: US-ABBOTT-08P-163-0469885-00

PATIENT
  Sex: Male
  Weight: 114.41 kg

DRUGS (7)
  1. VITAMIN B-12 [Concomitant]
     Indication: VITAMIN SUPPLEMENTATION
     Route: 050
     Dates: start: 20080101
  2. MAXIDEX [Concomitant]
     Indication: HYPERTENSION
     Dosage: 37.5/35 MG DAILY
     Route: 048
  3. NEXIUM [Concomitant]
     Indication: GASTROOESOPHAGEAL REFLUX DISEASE
     Route: 048
  4. RANITIDINE [Concomitant]
     Indication: DYSPEPSIA
     Route: 048
  5. CELEBREX [Concomitant]
     Indication: RHEUMATOID ARTHRITIS
     Route: 048
  6. HUMIRA [Suspect]
     Indication: RHEUMATOID ARTHRITIS
     Route: 058
     Dates: start: 20080401
  7. HUMIRA [Suspect]
     Indication: PSORIATIC ARTHROPATHY

REACTIONS (4)
  - PAIN [None]
  - CHEST PAIN [None]
  - BACK PAIN [None]
  - URINARY TRACT INFECTION [None]
